FAERS Safety Report 10983347 (Version 2)
Quarter: 2015Q4

REPORT INFORMATION
  Report Type: Spontaneous
  Country: US (occurrence: US)
  Receive Date: 20150403
  Receipt Date: 20151007
  Transmission Date: 20160304
  Serious: No
  Sender: FDA-Public Use
  Company Number: US-009507513-1503USA014281

PATIENT
  Sex: Male

DRUGS (1)
  1. PROPECIA [Suspect]
     Active Substance: FINASTERIDE
     Indication: ANDROGENETIC ALOPECIA
     Dosage: 1 MG, UNK
     Route: 048
     Dates: start: 200807, end: 200904

REACTIONS (7)
  - Cognitive disorder [Not Recovered/Not Resolved]
  - Breast pain [Unknown]
  - Depression [Not Recovered/Not Resolved]
  - Loss of libido [Unknown]
  - Sexual dysfunction [Not Recovered/Not Resolved]
  - Erectile dysfunction [Unknown]
  - Testicular pain [Unknown]

NARRATIVE: CASE EVENT DATE: 2009
